FAERS Safety Report 5337589-4 (Version None)
Quarter: 2007Q2

REPORT INFORMATION
  Report Type: 
  Country: None (occurrence: None)
  Receive Date: 20070524
  Receipt Date: 20070514
  Transmission Date: 20071010
  Serious: Yes (Death, Hospitalization)
  Sender: FDA-Public Use
  Company Number: TAP2007Q00644

PATIENT
  Age: 46 Year
  Sex: Male
  Weight: 63.63 kg

DRUGS (3)
  1. LUPRON DEPOT [Suspect]
     Indication: PROSTATE CANCER
     Dosage: 7.5 MG, ONCE, INTRAMUSCULAR
     Route: 030
     Dates: start: 19961201, end: 19961201
  2. LUPRON DEPOT [Suspect]
     Indication: PROSTATE CANCER
     Dosage: 7.5 MG, ONCE, INTRAMUSCULAR
     Route: 030
     Dates: start: 19961201, end: 19961201
  3. LUPRON DEPOT [Suspect]
     Indication: PROSTATE CANCER
     Dosage: 7.5 MG, ONCE, INTRAMUSCULAR
     Route: 030
     Dates: start: 19961201, end: 19961201

REACTIONS (5)
  - ANAEMIA [None]
  - CEREBRAL THROMBOSIS [None]
  - DEEP VEIN THROMBOSIS [None]
  - GENERAL PHYSICAL HEALTH DETERIORATION [None]
  - PLATELET COUNT DECREASED [None]
